FAERS Safety Report 12386602 (Version 2)
Quarter: 2016Q2

REPORT INFORMATION
  Report Type: Spontaneous
  Country: PT (occurrence: PT)
  Receive Date: 20160519
  Receipt Date: 20160606
  Transmission Date: 20160815
  Serious: Yes (Hospitalization, Other)
  Sender: FDA-Public Use
  Company Number: PT-WATSON-2016-10217

PATIENT
  Age: 55 Year
  Sex: Female

DRUGS (4)
  1. PREDNISOLONE (UNKNOWN) [Suspect]
     Active Substance: PREDNISOLONE
     Indication: IMMUNOSUPPRESSION
     Dosage: 5 MG, DAILY
     Route: 065
     Dates: start: 2014
  2. TACROLIMUS (UNKNOWN) [Suspect]
     Active Substance: TACROLIMUS
     Indication: IMMUNOSUPPRESSION
     Dosage: 3.5 MG, DAILY
     Route: 065
     Dates: start: 201401
  3. MYCOPHENOLATE MOFETIL. [Suspect]
     Active Substance: MYCOPHENOLATE MOFETIL
     Indication: IMMUNOSUPPRESSION
     Dosage: 500 MG, BID
     Route: 065
     Dates: start: 2014
  4. TACROLIMUS (UNKNOWN) [Suspect]
     Active Substance: TACROLIMUS
     Dosage: 4 MG, TOTAL
     Route: 065
     Dates: start: 201401

REACTIONS (1)
  - Visceral leishmaniasis [Recovered/Resolved]

NARRATIVE: CASE EVENT DATE: 201407
